FAERS Safety Report 18264721 (Version 15)
Quarter: 2024Q2

REPORT INFORMATION
  Report Type: Spontaneous
  Country: US (occurrence: US)
  Receive Date: 20200914
  Receipt Date: 20240520
  Transmission Date: 20240716
  Serious: Yes (Other)
  Sender: FDA-Public Use
  Company Number: US-PFIZER INC-2020222665

PATIENT
  Age: 61 Year
  Sex: Female
  Weight: 77.098 kg

DRUGS (6)
  1. XELJANZ [Suspect]
     Active Substance: TOFACITINIB CITRATE
     Indication: Rheumatoid arthritis
     Dosage: 10 MG, 2X/DAY
     Route: 048
     Dates: start: 202003
  2. XELJANZ [Suspect]
     Active Substance: TOFACITINIB CITRATE
     Dosage: 5 MG, 2X/DAY
     Route: 048
     Dates: start: 202003, end: 2020
  3. XELJANZ [Suspect]
     Active Substance: TOFACITINIB CITRATE
     Dosage: 5 MG, 2X/DAY
     Route: 048
     Dates: start: 20200529
  4. XELJANZ [Suspect]
     Active Substance: TOFACITINIB CITRATE
     Dosage: 5 MG, 2X/DAY
     Route: 048
  5. VALTREX [Concomitant]
     Active Substance: VALACYCLOVIR HYDROCHLORIDE
     Dosage: UNK
  6. ESTRADIOL [Concomitant]
     Active Substance: ESTRADIOL

REACTIONS (9)
  - Sinusitis [Unknown]
  - Herpes zoster [Not Recovered/Not Resolved]
  - Condition aggravated [Recovered/Resolved]
  - Sensitivity to weather change [Recovered/Resolved]
  - COVID-19 [Unknown]
  - Ear infection [Recovered/Resolved]
  - Fungal infection [Recovered/Resolved]
  - Vaginal infection [Recovered/Resolved]
  - Madarosis [Unknown]

NARRATIVE: CASE EVENT DATE: 20210201
